FAERS Safety Report 16583603 (Version 1)
Quarter: 2019Q3

REPORT INFORMATION
  Report Type: Spontaneous
  Country: DE (occurrence: DE)
  Receive Date: 20190717
  Receipt Date: 20190717
  Transmission Date: 20191004
  Serious: Yes (Hospitalization)
  Sender: FDA-Public Use
  Company Number: DE-PFIZER INC-2019299975

PATIENT
  Age: 53 Year
  Sex: Male

DRUGS (2)
  1. AMOXICILLIN. [Suspect]
     Active Substance: AMOXICILLIN
     Dosage: UNK (UNITS REPORTED AS MG; ALREADY WITHDRAWN)
  2. IBUPROFEN. [Suspect]
     Active Substance: IBUPROFEN
     Dosage: UNK (UNITS REPORTED AS MG; ALREADY WITHDRAWN)

REACTIONS (4)
  - Abdominal pain [Unknown]
  - Eructation [Unknown]
  - Flatulence [Unknown]
  - Vomiting [Unknown]
